FAERS Safety Report 5334725-0 (Version None)
Quarter: 2007Q2

REPORT INFORMATION
  Report Type: 
  Country: None (occurrence: None)
  Receive Date: 20070525
  Receipt Date: 20070517
  Transmission Date: 20071010
  Serious: Yes (Other)
  Sender: FDA-Public Use
  Company Number: US-JNJFOC-20070504486

PATIENT
  Sex: Male
  Weight: 109.32 kg

DRUGS (2)
  1. DURAGESIC-100 [Suspect]
     Indication: ANALGESIC EFFECT
     Route: 062
  2. VICODIN [Concomitant]
     Indication: PAIN
     Route: 048

REACTIONS (4)
  - ANKLE FRACTURE [None]
  - FALL [None]
  - FEELING ABNORMAL [None]
  - WRONG TECHNIQUE IN DRUG USAGE PROCESS [None]
